FAERS Safety Report 7262884-1 (Version None)
Quarter: 2011Q1

REPORT INFORMATION
  Report Type: 
  Country: None (occurrence: None)
  Receive Date: 20110130
  Receipt Date: 20100914
  Transmission Date: 20110831
  Serious: No
  Sender: FDA-Public Use
  Company Number: US-ABBOTT-10P-163-0670909-00

PATIENT
  Age: 57 Year
  Sex: Male

DRUGS (3)
  1. PREDNISONE [Concomitant]
     Indication: PRODUCT USED FOR UNKNOWN INDICATION
  2. PREDNISONE [Concomitant]
  3. HUMIRA [Suspect]
     Indication: PSORIASIS
     Dates: start: 20100625, end: 20100910

REACTIONS (4)
  - FATIGUE [None]
  - DYSPNOEA [None]
  - COUGH [None]
  - PNEUMONIA [None]
